FAERS Safety Report 20193724 (Version 2)
Quarter: 2021Q4

REPORT INFORMATION
  Report Type: Spontaneous
  Country: US (occurrence: US)
  Receive Date: 20211216
  Receipt Date: 20211223
  Transmission Date: 20220304
  Serious: Yes (Other)
  Sender: FDA-Public Use
  Company Number: US-SAMSUNG BIOEPIS-SB-2021-28930

PATIENT
  Age: 57 Year
  Sex: Female
  Weight: 68.4 kg

DRUGS (6)
  1. RENFLEXIS [Suspect]
     Active Substance: INFLIXIMAB-ABDA
     Indication: Crohn^s disease
     Route: 065
     Dates: start: 20210727, end: 20211108
  2. CYCLOSPORINE [Suspect]
     Active Substance: CYCLOSPORINE
     Indication: Product used for unknown indication
     Dosage: UNKNOWN
     Route: 065
  3. SULFASALAZINE [Concomitant]
     Active Substance: SULFASALAZINE
     Indication: Crohn^s disease
     Dosage: TWO DELAYED RELEASE TABLET
     Route: 048
     Dates: start: 20210517
  4. REMICADE [Concomitant]
     Active Substance: INFLIXIMAB
     Indication: Product used for unknown indication
     Dosage: UNKNOWN, SOLUTION
     Route: 042
  5. MELOXICAM [Concomitant]
     Active Substance: MELOXICAM
     Indication: Rheumatoid arthritis
     Dosage: UNKNOWN
     Route: 065
  6. TRAMADOL ER [Concomitant]
     Active Substance: TRAMADOL HYDROCHLORIDE
     Indication: Rheumatoid arthritis
     Dosage: UNKNOWN
     Route: 065

REACTIONS (7)
  - Rosacea [Not Recovered/Not Resolved]
  - Crohn^s disease [Unknown]
  - Pyoderma gangrenosum [Unknown]
  - Drug hypersensitivity [Recovering/Resolving]
  - Psoriasis [Recovering/Resolving]
  - Arthralgia [Unknown]
  - Hypertension [Unknown]

NARRATIVE: CASE EVENT DATE: 20210813
